FAERS Safety Report 6094374-6 (Version None)
Quarter: 2009Q1

REPORT INFORMATION
  Report Type: 
  Country: None (occurrence: None)
  Receive Date: 20090226
  Receipt Date: 20090218
  Transmission Date: 20090719
  Serious: Yes (Hospitalization)
  Sender: FDA-Public Use
  Company Number: US-AVENTIS-200821380GDDC

PATIENT
  Age: 72 Year
  Sex: Male
  Weight: 60.01 kg

DRUGS (16)
  1. TAXOTERE [Suspect]
     Route: 042
     Dates: start: 20080909, end: 20081111
  2. PREDNISONE [Suspect]
     Dosage: DOSE: 90 MG AS TOTAL DOSE THIS COURSE
     Route: 048
     Dates: start: 20080909, end: 20081118
  3. CODE UNBROKEN [Suspect]
     Dosage: DOSE: 90 MG AS TOTAL DOSE THIS COURSE
     Route: 048
     Dates: start: 20080909, end: 20081118
  4. DEXAMETHASONE [Suspect]
     Route: 042
     Dates: start: 20080909, end: 20081111
  5. B-KOMPLEX [Concomitant]
  6. CYANOCOBALAMIN [Concomitant]
  7. B-50                               /01533601/ [Concomitant]
  8. PEP ACID [Concomitant]
  9. OS-CAL                             /00188401/ [Concomitant]
  10. CALCIUM GLUCONATE [Concomitant]
  11. FISH OIL [Concomitant]
  12. GLUTATHIONE [Concomitant]
  13. IBUPROFEN [Concomitant]
  14. MAGNESIUM CHLORIDE ANHYDROUS [Concomitant]
  15. OXYCODONE [Concomitant]
  16. ASCORBIC ACID [Concomitant]

REACTIONS (2)
  - LOWER LIMB FRACTURE [None]
  - NEUROPATHY PERIPHERAL [None]
